FAERS Safety Report 8274162-2 (Version None)
Quarter: 2012Q2

REPORT INFORMATION
  Report Type: 
  Country: None (occurrence: None)
  Receive Date: 20120411
  Receipt Date: 20120330
  Transmission Date: 20120825
  Serious: Yes (Other)
  Sender: FDA-Public Use
  Company Number: JP-UCBSA-052221

PATIENT
  Age: 65 Year
  Sex: Male

DRUGS (14)
  1. ECLAR [Concomitant]
     Dosage: FORM:LOT
     Route: 061
     Dates: start: 20120207
  2. XYZAL [Suspect]
     Indication: PRURITUS
     Route: 048
     Dates: start: 20120124, end: 20120222
  3. TICLOPIDINE HCL [Concomitant]
     Route: 048
  4. CALCIUM CARBONATE [Concomitant]
     Route: 048
  5. CANDESARTAN CILEXETIL [Concomitant]
     Route: 048
  6. DOXAZOSIN MESYLATE [Concomitant]
     Route: 048
  7. REMITCH [Concomitant]
     Route: 048
  8. NIZORAL [Concomitant]
     Dosage: FORM:LOT
     Route: 061
     Dates: start: 20120207
  9. SLOWHEIM [Concomitant]
     Route: 048
  10. CINACALCET HYDROCHLORIDE [Concomitant]
     Route: 048
  11. ALLOPURINOL [Concomitant]
     Route: 048
  12. LOXOPROFEN [Concomitant]
     Route: 048
  13. LAC-B [Concomitant]
     Dosage: FORM:OPOW
     Route: 048
     Dates: start: 20120220
  14. EFFORTIL [Concomitant]
     Route: 030
     Dates: start: 20120220

REACTIONS (1)
  - HYPERPHOSPHATAEMIA [None]
